FAERS Safety Report 6786508-2 (Version None)
Quarter: 2010Q2

REPORT INFORMATION
  Report Type: 
  Country: None (occurrence: None)
  Receive Date: 20100623
  Receipt Date: 20100614
  Transmission Date: 20101027
  Serious: Yes (Hospitalization)
  Sender: FDA-Public Use
  Company Number: B0661751A

PATIENT
  Sex: Male

DRUGS (2)
  1. AUGMENTIN '125' [Suspect]
     Indication: DRUG USE FOR UNKNOWN INDICATION
     Dosage: 2U PER DAY
     Route: 048
     Dates: start: 20100523, end: 20100528
  2. UNKNOWN MEDICATION [Concomitant]
     Dosage: 125MG PER DAY
     Route: 054
     Dates: start: 20100601, end: 20100603

REACTIONS (3)
  - DRY MOUTH [None]
  - GENERALISED ERYTHEMA [None]
  - PRURITUS [None]
